FAERS Safety Report 17963137 (Version 1)
Quarter: 2020Q2

REPORT INFORMATION
  Report Type: Report from Study
  Country: None (occurrence: US)
  Receive Date: 20200630
  Receipt Date: 20200630
  Transmission Date: 20200714
  Serious: No
  Sender: FDA-Public Use
  Company Number: US-BIOVITRUM-2019US4274

PATIENT
  Sex: Male

DRUGS (12)
  1. TRAMADOL. [Concomitant]
     Active Substance: TRAMADOL
  2. PREDNISONE. [Concomitant]
     Active Substance: PREDNISONE
  3. CYMBALTA [Concomitant]
     Active Substance: DULOXETINE HYDROCHLORIDE
  4. ALLOPURINOL. [Concomitant]
     Active Substance: ALLOPURINOL
  5. LORAZEPAM. [Concomitant]
     Active Substance: LORAZEPAM
  6. SINGULAIR [Concomitant]
     Active Substance: MONTELUKAST SODIUM
  7. TAMSULOSIN [Concomitant]
     Active Substance: TAMSULOSIN
  8. AMYTRIPTYLINE [Concomitant]
  9. KINERET [Suspect]
     Active Substance: ANAKINRA
     Indication: RHEUMATOID ARTHRITIS
     Route: 058
     Dates: start: 20191029
  10. ROSUVASTATIN. [Concomitant]
     Active Substance: ROSUVASTATIN
  11. NEXIUM [Concomitant]
     Active Substance: ESOMEPRAZOLE MAGNESIUM
  12. FINASTERIDE. [Concomitant]
     Active Substance: FINASTERIDE

REACTIONS (3)
  - Injection site bruising [Recovered/Resolved]
  - Increased tendency to bruise [Unknown]
  - Insomnia [Unknown]
